FAERS Safety Report 5598286-3 (Version None)
Quarter: 2008Q1

REPORT INFORMATION
  Report Type: 
  Country: None (occurrence: None)
  Receive Date: 20080122
  Receipt Date: 20080117
  Transmission Date: 20080703
  Serious: Yes (Death, Other)
  Sender: FDA-Public Use
  Company Number: GB-ABBOTT-08P-167-0434052-00

PATIENT
  Age: 76 Year
  Sex: Female

DRUGS (9)
  1. SEVOFLURANE [Suspect]
     Indication: DRUG USE FOR UNKNOWN INDICATION
     Dates: start: 19990210, end: 19990210
  2. FENTANYL [Suspect]
     Indication: ANAESTHESIA
     Dates: start: 19990210, end: 19990210
  3. TEMAZEPAM [Suspect]
     Indication: ANAESTHESIA
     Dates: start: 19990210, end: 19990210
  4. MIDAZOLAM HCL [Suspect]
     Indication: ANAESTHESIA
     Dates: start: 19990210, end: 19990210
  5. PROPOFOL [Suspect]
     Indication: ANAESTHESIA
     Dates: start: 19990210, end: 19990210
  6. NITROUS OXIDE [Suspect]
     Indication: DRUG USE FOR UNKNOWN INDICATION
     Dates: start: 19990210, end: 19990210
  7. UNSPECIFIED ANTIMETITICS [Concomitant]
     Indication: DRUG USE FOR UNKNOWN INDICATION
  8. UNSPECIFIED ANTIBIOTICS [Concomitant]
     Indication: DRUG USE FOR UNKNOWN INDICATION
  9. OXYGEN [Concomitant]
     Indication: DRUG USE FOR UNKNOWN INDICATION

REACTIONS (3)
  - CARDIAC FAILURE [None]
  - HEART RATE INCREASED [None]
  - PCO2 DECREASED [None]
